FAERS Safety Report 8346641-0 (Version None)
Quarter: 2012Q2

REPORT INFORMATION
  Report Type: 
  Country: None (occurrence: None)
  Receive Date: 20120509
  Receipt Date: 20120504
  Transmission Date: 20120825
  Serious: Yes (Hospitalization)
  Sender: FDA-Public Use
  Company Number: PHHO2011DE019940

PATIENT
  Sex: Male
  Weight: 126.9 kg

DRUGS (13)
  1. ILARIS [Suspect]
     Indication: ARTERIOSCLEROSIS
     Dosage: CODE NOT BROKEN
     Route: 058
     Dates: start: 20110331
  2. LEVEMIR [Concomitant]
     Indication: TYPE 2 DIABETES MELLITUS
     Dosage: 30 IU, QD
     Route: 058
     Dates: start: 20000201, end: 20111122
  3. CYMBALTA [Concomitant]
     Indication: DIABETIC NEUROPATHY
     Dosage: 60 MG, QD
     Dates: start: 20110904, end: 20111122
  4. EBRANTIL [Concomitant]
     Indication: HYPERTENSION
     Dosage: 90 MG, BID
     Route: 048
     Dates: start: 20090101, end: 20111123
  5. METOPROLOL TARTRATE [Concomitant]
     Dosage: 95 MG, QD
     Route: 048
     Dates: start: 20111123, end: 20111129
  6. PLACEBO [Suspect]
     Indication: ARTERIOSCLEROSIS
     Dosage: CODE NOT BROKEN
     Route: 058
     Dates: start: 20110331
  7. NOVORAPID [Concomitant]
     Indication: TYPE 2 DIABETES MELLITUS
     Dosage: PRN
     Dates: start: 20070101, end: 20111123
  8. ASPIRIN [Concomitant]
     Indication: CORONARY ARTERY DISEASE
     Dosage: 100 MG, QD
     Dates: start: 20070101, end: 20111123
  9. CLOPIDOGREL [Concomitant]
     Indication: CORONARY ARTERY DISEASE
     Dosage: 15 MG, QD
     Dates: start: 20080101, end: 20111123
  10. METOPROLOL TARTRATE [Concomitant]
     Indication: SINUS TACHYCARDIA
     Dosage: 47.5 MG, QD
     Route: 048
     Dates: start: 20111015, end: 20111017
  11. SIMVASTATIN [Concomitant]
     Indication: HYPERCHOLESTEROLAEMIA
     Dosage: 40 MG, QD
     Dates: start: 20080101, end: 20111122
  12. TORSEMIDE [Concomitant]
     Indication: HYPERTENSION
     Dosage: 10 MG, BID
     Route: 048
     Dates: start: 20090101, end: 20111115
  13. APROVEL [Concomitant]
     Indication: HYPERTENSION
     Dosage: 150 MG, BID
     Route: 048
     Dates: start: 20080101, end: 20111123

REACTIONS (4)
  - DIABETIC FOOT INFECTION [None]
  - GOUTY ARTHRITIS [None]
  - CONCOMITANT DISEASE PROGRESSION [None]
  - INFECTION [None]
